FAERS Safety Report 4759079-X (Version None)
Quarter: 2005Q3

REPORT INFORMATION
  Report Type: 
  Country: None (occurrence: None)
  Receive Date: 20050901
  Receipt Date: 20050822
  Transmission Date: 20060218
  Serious: Yes (Hospitalization)
  Sender: FDA-Public Use
  Company Number: US-KINGPHARMUSA00001-K200501101

PATIENT
  Age: 73 Year
  Sex: Male

DRUGS (11)
  1. ALTACE [Suspect]
     Indication: ISCHAEMIC CARDIOMYOPATHY
     Dosage: 10 MG, QD
     Route: 048
     Dates: end: 20050701
  2. DOLIPRANE [Suspect]
     Route: 048
     Dates: end: 20050703
  3. ACEBUTOLOL [Suspect]
     Indication: ISCHAEMIC CARDIOMYOPATHY
     Dosage: 200 MG, QD
     Route: 048
     Dates: end: 20050703
  4. DILTIAZEM [Suspect]
     Indication: ISCHAEMIC CARDIOMYOPATHY
     Dosage: 300 MG, QD
     Route: 048
     Dates: end: 20050626
  5. DILTIAZEM [Suspect]
     Dosage: 300 MG, QD
     Route: 048
     Dates: start: 20050705
  6. ALLOPURINOL [Suspect]
     Dosage: 200 MG, QD
     Route: 048
     Dates: end: 20050703
  7. METFORMINE ^MERCK^ [Suspect]
     Indication: DIABETES MELLITUS NON-INSULIN-DEPENDENT
     Dosage: 1,700 MG, QD
     Route: 048
     Dates: end: 20050628
  8. ZOCOR [Suspect]
     Indication: ISCHAEMIC CARDIOMYOPATHY
     Dosage: 20 MG, QD
     Route: 048
     Dates: end: 20050703
  9. NOCTRAN [Suspect]
     Route: 048
     Dates: end: 20050703
  10. PLAVIX [Suspect]
     Dates: end: 20050703
  11. PENTOXIFYLLINE [Suspect]
     Dates: end: 20050703

REACTIONS (14)
  - ASTHENIA [None]
  - BLOOD CREATININE INCREASED [None]
  - CREATININE RENAL CLEARANCE DECREASED [None]
  - CREPITATIONS [None]
  - DYSPNOEA EXERTIONAL [None]
  - HYPOTENSION [None]
  - HYPOXIA [None]
  - MICROCYTIC ANAEMIA [None]
  - OESOPHAGEAL DISORDER [None]
  - PULMONARY FIBROSIS [None]
  - PYREXIA [None]
  - RECTAL HAEMORRHAGE [None]
  - RENAL FAILURE [None]
  - RESPIRATORY FAILURE [None]
